FAERS Safety Report 5291450-2 (Version None)
Quarter: 2007Q2

REPORT INFORMATION
  Report Type: 
  Country: None (occurrence: None)
  Receive Date: 20070402
  Receipt Date: 20070327
  Transmission Date: 20071010
  Serious: Yes (Death, Hospitalization)
  Sender: FDA-Public Use
  Company Number: TCI2006A04971

PATIENT
  Age: 81 Year
  Sex: Female

DRUGS (3)
  1. ACTOS [Suspect]
     Indication: DIABETES MELLITUS NON-INSULIN-DEPENDENT
     Dosage: 15 MG (15 MG, 1 IN 1 D) PER ORAL
     Route: 048
     Dates: end: 20050404
  2. GLYBURIDE [Suspect]
     Indication: DIABETES MELLITUS NON-INSULIN-DEPENDENT
     Dosage: 5 MG (2.5 MG, 2 IN 1 D) PER ORAL
     Route: 048
     Dates: start: 20030101, end: 20050404
  3. NORVASC [Concomitant]

REACTIONS (15)
  - BLOOD GLUCOSE DECREASED [None]
  - BRONCHITIS [None]
  - CARDIO-RESPIRATORY ARREST [None]
  - DECREASED APPETITE [None]
  - DEPRESSED LEVEL OF CONSCIOUSNESS [None]
  - DIZZINESS [None]
  - FALL [None]
  - GAIT DISTURBANCE [None]
  - HYPOGLYCAEMIC COMA [None]
  - MYDRIASIS [None]
  - NASOPHARYNGITIS [None]
  - NO THERAPEUTIC RESPONSE [None]
  - PULMONARY CONGESTION [None]
  - PULMONARY EMBOLISM [None]
  - PUPILLARY REFLEX IMPAIRED [None]
